FAERS Safety Report 6518909-1 (Version None)
Quarter: 2009Q4

REPORT INFORMATION
  Report Type: 
  Country: None (occurrence: None)
  Receive Date: 20091228
  Receipt Date: 20091214
  Transmission Date: 20100525
  Serious: Yes (Other)
  Sender: FDA-Public Use
  Company Number: FR-PURDUE-GBR-2009-0005941

PATIENT
  Age: 29 Year
  Sex: Female
  Weight: 56 kg

DRUGS (6)
  1. NON-PMN MORPHINE SULFATE [Suspect]
     Dosage: 400 UG, SINGLE
     Route: 037
  2. HYDROXYZINE [Concomitant]
     Dosage: 100 MG, SINGLE
  3. PROPOFOL [Concomitant]
     Indication: GENERAL ANAESTHESIA
     Dosage: UNK
  4. REMIFENTANIL [Concomitant]
     Indication: GENERAL ANAESTHESIA
     Dosage: UNK
  5. SEVOFLURANE [Concomitant]
     Indication: GENERAL ANAESTHESIA
     Dosage: UNK
  6. ATRACURIUM [Concomitant]
     Indication: GENERAL ANAESTHESIA
     Dosage: UNK

REACTIONS (1)
  - SENSORIMOTOR DISORDER [None]
